FAERS Safety Report 10876620 (Version 1)
Quarter: 2015Q1

REPORT INFORMATION
  Report Type: Spontaneous
  Country: DE (occurrence: DE)
  Receive Date: 20150301
  Receipt Date: 20150301
  Transmission Date: 20150721
  Serious: Yes (Other)
  Sender: FDA-Public Use
  Company Number: ALCN2015DE001439

PATIENT
  Sex: Female

DRUGS (1)
  1. VITALUX PLUS [Suspect]
     Active Substance: VITAMINS
     Indication: AGE-RELATED MACULAR DEGENERATION
     Dosage: UNK
     Route: 048

REACTIONS (1)
  - Neovascular age-related macular degeneration [Unknown]
